FAERS Safety Report 8157815-6 (Version None)
Quarter: 2012Q1

REPORT INFORMATION
  Report Type: 
  Country: None (occurrence: None)
  Receive Date: 20120222
  Receipt Date: 20120214
  Transmission Date: 20120608
  Serious: No
  Sender: FDA-Public Use
  Company Number: US-B.I. PHARMACEUTICALS,INC./RIDGEFIELD-2012-BP-01281BP

PATIENT
  Age: 38 Year
  Sex: Female

DRUGS (3)
  1. MICARDIS [Suspect]
     Indication: BLOOD PRESSURE
  2. EXCEDRIN (MIGRAINE) [Suspect]
  3. LEVOXYL [Concomitant]

REACTIONS (7)
  - PALPITATIONS [None]
  - NAUSEA [None]
  - TACHYCARDIA [None]
  - DIZZINESS [None]
  - DYSPNOEA [None]
  - COLD SWEAT [None]
  - ILL-DEFINED DISORDER [None]
